FAERS Safety Report 18413879 (Version 1)
Quarter: 2020Q4

REPORT INFORMATION
  Report Type: Spontaneous
  Country: IL (occurrence: IL)
  Receive Date: 20201022
  Receipt Date: 20201022
  Transmission Date: 20210114
  Serious: Yes (Life-Threatening, Other)
  Sender: FDA-Public Use
  Company Number: IL-REGENERON PHARMACEUTICALS, INC.-2020-83308

PATIENT

DRUGS (1)
  1. LIBTAYO [Suspect]
     Active Substance: CEMIPLIMAB-RWLC
     Indication: PRODUCT USED FOR UNKNOWN INDICATION
     Dosage: 350 UNK
     Route: 065
     Dates: start: 20200920

REACTIONS (3)
  - Cardiac failure [Recovering/Resolving]
  - Troponin increased [Recovering/Resolving]
  - Ejection fraction decreased [Recovering/Resolving]
